FAERS Safety Report 17442864 (Version 1)
Quarter: 2020Q1

REPORT INFORMATION
  Report Type: Spontaneous
  Country: KR (occurrence: KR)
  Receive Date: 20200221
  Receipt Date: 20200221
  Transmission Date: 20200409
  Serious: Yes (Other)
  Sender: FDA-Public Use
  Company Number: KR-CELLTRION INC.-2020KR019414

PATIENT

DRUGS (5)
  1. HERZUMA [Suspect]
     Active Substance: TRASTUZUMAB-PKRB
     Dosage: 8 MG/KG, USED 2 VIALS (1 VIAL OF 440MG)
     Dates: start: 20200213
  2. HERZUMA [Suspect]
     Active Substance: TRASTUZUMAB-PKRB
     Indication: BREAST CANCER
     Dosage: 8 MG/KG, USED 2 VIALS (1 VIAL OF 150MG)
     Dates: start: 20200213
  3. VISVI [Concomitant]
     Dosage: PRESCRIPTION FOR 1 MONTH
     Dates: start: 20200116
  4. BRETRA [Concomitant]
     Dosage: PRESCRIPTION FOR 1 MONTH
     Dates: start: 20200116
  5. DOXIFLURIDINE [Concomitant]
     Active Substance: DOXIFLURIDINE
     Dosage: PRESCRIPTION FOR 1 MONTH
     Dates: start: 20200116

REACTIONS (3)
  - White blood cell count increased [Not Recovered/Not Resolved]
  - Tachycardia [Not Recovered/Not Resolved]
  - Pyrexia [Not Recovered/Not Resolved]

NARRATIVE: CASE EVENT DATE: 20200213
